FAERS Safety Report 24566537 (Version 1)
Quarter: 2024Q4

REPORT INFORMATION
  Report Type: Report from Study
  Country: BR (occurrence: BR)
  Receive Date: 20241030
  Receipt Date: 20241030
  Transmission Date: 20250115
  Serious: Yes (Other)
  Sender: JOHNSON AND JOHNSON
  Company Number: BR-JNJFOC-20241072854

PATIENT
  Age: 44 Year
  Sex: Female
  Weight: 85 kg

DRUGS (4)
  1. INFLIXIMAB [Suspect]
     Active Substance: INFLIXIMAB
     Indication: Ankylosing spondylitis
     Route: 041
     Dates: start: 20231211, end: 202406
  2. INFLIXIMAB [Suspect]
     Active Substance: INFLIXIMAB
     Indication: Crohn^s disease
  3. INFLIXIMAB [Suspect]
     Active Substance: INFLIXIMAB
     Indication: Colitis
  4. REMICADE [Suspect]
     Active Substance: INFLIXIMAB
     Indication: Ankylosing spondylitis
     Route: 041

REACTIONS (15)
  - Mammoplasty [Unknown]
  - Deafness unilateral [Unknown]
  - Blindness unilateral [Unknown]
  - Spinal cord injury [Unknown]
  - Uterine operation [Unknown]
  - Cholecystectomy [Unknown]
  - Hernia repair [Unknown]
  - Plastic surgery [Unknown]
  - Colitis [Not Recovered/Not Resolved]
  - Crohn^s disease [Not Recovered/Not Resolved]
  - Ankylosing spondylitis [Not Recovered/Not Resolved]
  - Chest pain [Unknown]
  - Diastasis recti abdominis [Unknown]
  - Skin mass [Unknown]
  - Off label use [Unknown]

NARRATIVE: CASE EVENT DATE: 20240801
